FAERS Safety Report 7665271-7 (Version None)
Quarter: 2011Q3

REPORT INFORMATION
  Report Type: 
  Country: None (occurrence: None)
  Receive Date: 20110806
  Receipt Date: 20110518
  Transmission Date: 20111222
  Serious: No
  Sender: FDA-Public Use
  Company Number: US-ABBOTT-11P-163-0726901-00

PATIENT
  Sex: Female
  Weight: 65.376 kg

DRUGS (8)
  1. AMIODARONE HCL [Concomitant]
     Indication: HEART RATE INCREASED
  2. WARFARIN SODIUM [Concomitant]
     Indication: CORONARY ARTERY BYPASS
  3. AMLODIPINE [Concomitant]
     Indication: BLOOD PRESSURE
  4. NIASPAN [Suspect]
     Indication: BLOOD CHOLESTEROL INCREASED
     Dosage: 500MG DAILY
     Route: 048
     Dates: start: 20110510, end: 20110511
  5. LANTUS [Concomitant]
     Indication: DIABETES MELLITUS
  6. HUMALOG [Concomitant]
     Indication: DIABETES MELLITUS
  7. LOSARTAN POTASSIUM [Concomitant]
     Indication: BLOOD PRESSURE
  8. VITAMIN B [Concomitant]
     Indication: VITAMIN SUPPLEMENTATION

REACTIONS (3)
  - ABDOMINAL DISCOMFORT [None]
  - CHEST DISCOMFORT [None]
  - GASTROOESOPHAGEAL REFLUX DISEASE [None]
